FAERS Safety Report 8016212-4 (Version None)
Quarter: 2011Q4

REPORT INFORMATION
  Report Type: 
  Country: None (occurrence: None)
  Receive Date: 20111228
  Receipt Date: 20111228
  Transmission Date: 20120403
  Serious: Yes (Other)
  Sender: FDA-Public Use
  Company Number: None

PATIENT
  Age: 59 Year
  Sex: Female
  Weight: 91.173 kg

DRUGS (1)
  1. FERAHEME [Suspect]
     Indication: IRON DEFICIENCY ANAEMIA
     Dosage: FERAHEME 510MG X2 IV
     Route: 042
     Dates: start: 20111216

REACTIONS (3)
  - FEELING ABNORMAL [None]
  - FLUSHING [None]
  - DIARRHOEA [None]
